FAERS Safety Report 4950375-X (Version None)
Quarter: 2006Q1

REPORT INFORMATION
  Report Type: 
  Country: None (occurrence: None)
  Receive Date: 20060322
  Receipt Date: 20060316
  Transmission Date: 20060701
  Serious: Yes (Hospitalization)
  Sender: FDA-Public Use
  Company Number: GB-AVENTIS-200611660EU

PATIENT
  Age: 77 Year
  Sex: Male
  Weight: 60.7 kg

DRUGS (11)
  1. ENOXAPARIN SODIUM [Suspect]
     Indication: ACUTE CORONARY SYNDROME
     Route: 058
  2. ABCIXIMAB [Suspect]
     Indication: ACUTE CORONARY SYNDROME
  3. ASPIRIN [Concomitant]
  4. CLOPIDOGREL [Concomitant]
  5. ATORVASTATIN CALCIUM [Concomitant]
  6. SERETIDE ^ALLEN + HANBURYS LTD^ [Concomitant]
  7. ISOSORBIDE MONONITRATE [Concomitant]
  8. ADIZEM-XL [Concomitant]
  9. LANSOPRAZOLE [Concomitant]
  10. QUININE SULFATE [Concomitant]
  11. ACETAMINOPHEN [Concomitant]

REACTIONS (2)
  - POST PROCEDURAL COMPLICATION [None]
  - TROPONIN T INCREASED [None]
